FAERS Safety Report 6600462-5 (Version None)
Quarter: 2010Q1

REPORT INFORMATION
  Report Type: 
  Country: None (occurrence: None)
  Receive Date: 20100223
  Receipt Date: 20100223
  Transmission Date: 20100710
  Serious: Yes (Other)
  Sender: FDA-Public Use
  Company Number: None

PATIENT
  Sex: Female

DRUGS (4)
  1. SYNAGIS [Suspect]
     Indication: RESPIRATORY SYNCYTIAL VIRUS INFECTION
     Dosage: 15 MG/KG ONCE A MONTH IM
     Route: 030
     Dates: start: 20091001, end: 20100222
  2. ALBUTEROL [Concomitant]
  3. NYSTATIN [Concomitant]
  4. PREVACID [Concomitant]

REACTIONS (3)
  - BLEPHAROSPASM [None]
  - DYSKINESIA [None]
  - TREMOR [None]
